FAERS Safety Report 14484536 (Version 1)
Quarter: 2018Q1

REPORT INFORMATION
  Report Type: Spontaneous
  Country: US (occurrence: US)
  Receive Date: 20180202
  Receipt Date: 20180202
  Transmission Date: 20180509
  Serious: Yes (Disabling)
  Sender: FDA-Public Use
  Company Number: None

PATIENT
  Age: 52 Year
  Sex: Female
  Weight: 58.5 kg

DRUGS (9)
  1. VIACTIV CALCIUM + D SUPPLEMENT [Concomitant]
  2. ZYRTEC [Concomitant]
     Active Substance: CETIRIZINE HYDROCHLORIDE
  3. ZANTAC [Concomitant]
     Active Substance: RANITIDINE HYDROCHLORIDE
  4. ADVAIR DISKUS [Suspect]
     Active Substance: FLUTICASONE PROPIONATE\SALMETEROL XINAFOATE
     Indication: ASTHMA
     Dosage: ?          OTHER STRENGTH:MCG;QUANTITY:1 INHALATION(S);?
     Route: 055
     Dates: start: 20171001, end: 20180201
  5. DAILY MULTIVITAMIN [Concomitant]
     Active Substance: VITAMINS
  6. PREVACID [Concomitant]
     Active Substance: LANSOPRAZOLE
  7. FLUCONAZOLE. [Concomitant]
     Active Substance: FLUCONAZOLE
  8. COQ10 [Concomitant]
     Active Substance: UBIDECARENONE
  9. ALBUTEROL INHALER [Concomitant]
     Active Substance: ALBUTEROL

REACTIONS (3)
  - Vocal cord disorder [None]
  - Dysphonia [None]
  - Candida infection [None]

NARRATIVE: CASE EVENT DATE: 20180201
